FAERS Safety Report 19598448 (Version 3)
Quarter: 2021Q3

REPORT INFORMATION
  Report Type: Spontaneous
  Country: GB (occurrence: GB)
  Receive Date: 20210722
  Receipt Date: 20210907
  Transmission Date: 20211014
  Serious: Yes (Hospitalization, Other)
  Sender: FDA-Public Use
  Company Number: GB-DEXPHARM-20211146

PATIENT
  Age: 68 Year
  Sex: Female
  Weight: 92 kg

DRUGS (18)
  1. METHOTREXATE. [Suspect]
     Active Substance: METHOTREXATE
     Indication: RHEUMATOID ARTHRITIS
     Dosage: UNK UNK, WEEKLY (AT 17.5, WEEKLY)
     Dates: start: 20100917
  2. OMEPRAZOLE. [Suspect]
     Active Substance: OMEPRAZOLE
     Indication: ABDOMINAL DISCOMFORT
     Dates: start: 20100917
  3. CABERGOLINE. [Concomitant]
     Active Substance: CABERGOLINE
     Indication: EMPTY SELLA SYNDROME
     Dosage: UNK
  4. 1,3?DIPHENYLGUANIDINE [Suspect]
     Active Substance: DIPHENYLGUANIDINE
     Indication: DEPRESSION
  5. IRBESARTAN. [Suspect]
     Active Substance: IRBESARTAN
     Indication: PRODUCT USED FOR UNKNOWN INDICATION
     Dosage: 150 G, DAILY
     Dates: start: 20100917
  6. PHYLLOCONTIN [Suspect]
     Active Substance: AMINOPHYLLINE
     Indication: PRODUCT USED FOR UNKNOWN INDICATION
     Dosage: 400 MG, DAILY
     Dates: start: 20100917
  7. EZETIMIBE. [Concomitant]
     Active Substance: EZETIMIBE
  8. ZINC DIETHYLDITHIOCARBAMATE [Suspect]
     Active Substance: DITIOCARB ZINC
     Indication: DEPRESSION
  9. CARBOCISTEINE [Suspect]
     Active Substance: CARBOCYSTEINE
     Indication: RHEUMATOID ARTHRITIS
     Dosage: 750 MG, DAILY
     Dates: start: 20100917
  10. OMEPRAZOLE. [Suspect]
     Active Substance: OMEPRAZOLE
     Indication: ABDOMINAL DISCOMFORT
     Dosage: 20 MG, 2X/DAY FOR STOMACH;
  11. ORUVAIL [Concomitant]
     Active Substance: KETOPROFEN
     Indication: EMPTY SELLA SYNDROME
  12. VENSIR XL PROLONGED RELEASE [Suspect]
     Active Substance: VENLAFAXINE HYDROCHLORIDE
     Indication: DEPRESSION
     Dosage: 225 MG, DAILY (PROLONGED RELEASE)
  13. BENDROFLUMETHIAZIDE [Concomitant]
     Active Substance: BENDROFLUMETHIAZIDE
     Indication: PITUITARY TUMOUR
     Dosage: UNK
  14. CETIRIZINE [Concomitant]
     Active Substance: CETIRIZINE HYDROCHLORIDE
     Indication: ABDOMINAL DISCOMFORT
  15. LEVOTHYROXINE. [Concomitant]
     Active Substance: LEVOTHYROXINE
  16. CIPROFLOXACIN HYDROCHLORIDE. [Suspect]
     Active Substance: CIPROFLOXACIN HYDROCHLORIDE
     Indication: ABDOMINAL DISCOMFORT
     Dosage: 1000 MG, DAILY
     Dates: start: 20100917
  17. ENBREL [Suspect]
     Active Substance: ETANERCEPT
     Indication: RHEUMATOID ARTHRITIS
     Dosage: 50 MG, WEEKLY
     Route: 058
     Dates: start: 20100917
  18. FOLIC ACID. [Concomitant]
     Active Substance: FOLIC ACID

REACTIONS (2)
  - Lower respiratory tract infection [Not Recovered/Not Resolved]
  - Pulmonary pain [Unknown]
